FAERS Safety Report 8718822 (Version 2)
Quarter: 2013Q4

REPORT INFORMATION
  Report Type: Spontaneous
  Country: CA (occurrence: CA)
  Receive Date: 20120810
  Receipt Date: 20131031
  Transmission Date: 20140711
  Serious: Yes (Hospitalization)
  Sender: FDA-Public Use
  Company Number: CA-MERCK-2012SP026553

PATIENT
  Age: 49 Year
  Sex: Female
  Weight: 71 kg

DRUGS (3)
  1. SAPHRIS [Suspect]
     Indication: SCHIZOPHRENIA
     Dosage: 5 MG, BID
     Route: 060
     Dates: start: 20120501, end: 20120601
  2. CELEXA [Concomitant]
     Indication: DEPRESSION
     Dosage: 40 MG, UNK
     Route: 048
  3. CLONAZEPAM [Concomitant]
     Indication: ANXIETY
     Dosage: 0.5 MG, UNK
     Route: 048

REACTIONS (13)
  - Suicidal ideation [Not Recovered/Not Resolved]
  - Depressive symptom [Not Recovered/Not Resolved]
  - Pyrexia [Recovering/Resolving]
  - Hyperhidrosis [Recovering/Resolving]
  - Decreased appetite [Recovering/Resolving]
  - Nausea [Recovering/Resolving]
  - Diarrhoea [Recovering/Resolving]
  - Anxiety [Not Recovered/Not Resolved]
  - Disturbance in attention [Not Recovered/Not Resolved]
  - Headache [Not Recovered/Not Resolved]
  - Confusional state [Not Recovered/Not Resolved]
  - Dizziness [Not Recovered/Not Resolved]
  - Tremor [Recovering/Resolving]
